FAERS Safety Report 19940406 (Version 1)
Quarter: 2021Q4

REPORT INFORMATION
  Report Type: Spontaneous
  Country: US (occurrence: US)
  Receive Date: 20211011
  Receipt Date: 20211011
  Transmission Date: 20220304
  Serious: Yes (Other)
  Sender: FDA-Public Use
  Company Number: US-GLAXOSMITHKLINE-US2021AMR207570

PATIENT

DRUGS (1)
  1. BREO ELLIPTA [Suspect]
     Active Substance: FLUTICASONE FUROATE\VILANTEROL TRIFENATATE
     Indication: Product used for unknown indication
     Dosage: UNK

REACTIONS (11)
  - Intracranial aneurysm [Unknown]
  - Gastrointestinal fungal infection [Unknown]
  - Arrhythmia [Unknown]
  - Blood potassium decreased [Unknown]
  - Visual impairment [Unknown]
  - Headache [Unknown]
  - Eye pain [Unknown]
  - Herpes virus infection [Unknown]
  - Tachycardia [Unknown]
  - Hypertension [Unknown]
  - Eye disorder [Unknown]
